FAERS Safety Report 4743686-4 (Version None)
Quarter: 2005Q3

REPORT INFORMATION
  Report Type: 
  Country: None (occurrence: None)
  Receive Date: 20050812
  Receipt Date: 20050624
  Transmission Date: 20060218
  Serious: Yes (Other)
  Sender: FDA-Public Use
  Company Number: US-AMGEN-US140283

PATIENT
  Sex: Male

DRUGS (5)
  1. ENBREL [Suspect]
     Indication: RHEUMATOID ARTHRITIS
     Route: 058
     Dates: start: 20000307, end: 20050503
  2. HUMIRA [Suspect]
     Dates: start: 20050503, end: 20050601
  3. ARAVA [Concomitant]
     Dates: start: 19990702, end: 20000307
  4. PREDNISONE [Concomitant]
     Dates: start: 19990721
  5. CELEBREX [Concomitant]
     Dates: start: 19990721

REACTIONS (3)
  - ACUTE LYMPHOCYTIC LEUKAEMIA [None]
  - LEUKOPENIA [None]
  - THROMBOCYTOPENIA [None]
